FAERS Safety Report 8060997-8 (Version None)
Quarter: 2012Q1

REPORT INFORMATION
  Report Type: 
  Country: None (occurrence: None)
  Receive Date: 20120120
  Receipt Date: 20120117
  Transmission Date: 20120608
  Serious: Yes (Life-Threatening, Hospitalization, Disabling, Other)
  Sender: FDA-Public Use
  Company Number: US-MERCK-1201USA02295

PATIENT
  Age: 45 Year
  Sex: Male

DRUGS (3)
  1. ISENTRESS [Suspect]
     Route: 048
     Dates: start: 20100117
  2. ATRIPLA [Concomitant]
     Route: 065
  3. ACYCLOVIR [Concomitant]
     Route: 065

REACTIONS (6)
  - THROMBOTIC THROMBOCYTOPENIC PURPURA [None]
  - RENAL IMPAIRMENT [None]
  - ANAEMIA [None]
  - SINUSITIS [None]
  - INFLUENZA LIKE ILLNESS [None]
  - THROMBOCYTOPENIA [None]
